FAERS Safety Report 5062459-9 (Version None)
Quarter: 2006Q3

REPORT INFORMATION
  Report Type: 
  Country: None (occurrence: None)
  Receive Date: 20060721
  Receipt Date: 20060712
  Transmission Date: 20061208
  Serious: No
  Sender: FDA-Public Use
  Company Number: 2006-143719-NL

PATIENT
  Age: 90 Year
  Sex: Female

DRUGS (5)
  1. MIRTAZAPINE [Suspect]
     Indication: DEPRESSION
     Dosage: 15 MG ORAL
     Route: 048
     Dates: start: 20060601, end: 20060601
  2. OMEPRAZOLE [Concomitant]
  3. NICARDIPINE HYDROCHLORIDE [Concomitant]
  4. FUROSEMIDE [Concomitant]
  5. ASPIRIN [Concomitant]

REACTIONS (8)
  - APATHY [None]
  - BLOOD GLUCOSE DECREASED [None]
  - BLOOD PRESSURE SYSTOLIC INCREASED [None]
  - BRADYCARDIA [None]
  - COMA [None]
  - HYPOTENSION [None]
  - PALLOR [None]
  - RED BLOOD CELL SEDIMENTATION RATE INCREASED [None]
